FAERS Safety Report 19614614 (Version 11)
Quarter: 2022Q1

REPORT INFORMATION
  Report Type: Spontaneous
  Country: GB (occurrence: GB)
  Receive Date: 20210727
  Receipt Date: 20220308
  Transmission Date: 20220423
  Serious: Yes (Death, Hospitalization, Other)
  Sender: FDA-Public Use
  Company Number: GB-ROCHE-2680153

PATIENT
  Age: 55 Year
  Sex: Female

DRUGS (70)
  1. TRASTUZUMAB [Suspect]
     Active Substance: TRASTUZUMAB
     Indication: Breast cancer
     Dosage: 525 MILLIGRAM, Q3WK
     Route: 042
     Dates: start: 20170524, end: 20170524
  2. TRASTUZUMAB [Suspect]
     Active Substance: TRASTUZUMAB
     Indication: Breast cancer metastatic
     Dosage: 400 MILLIGRAM, Q3WK
     Route: 042
     Dates: start: 20170614, end: 20180425
  3. TRASTUZUMAB [Suspect]
     Active Substance: TRASTUZUMAB
     Dosage: 378 MILLIGRAM, Q3WK
     Route: 042
     Dates: start: 20180516
  4. XELODA [Suspect]
     Active Substance: CAPECITABINE
     Indication: Breast cancer
     Dosage: 1300 MILLIGRAM
     Route: 048
     Dates: start: 20201020
  5. XELODA [Suspect]
     Active Substance: CAPECITABINE
     Indication: Breast cancer metastatic
  6. CAPECITABINE [Suspect]
     Active Substance: CAPECITABINE
     Indication: Breast cancer
     Dosage: 3 MILLIGRAM
     Route: 048
     Dates: start: 20200525, end: 20200525
  7. CAPECITABINE [Suspect]
     Active Substance: CAPECITABINE
     Dosage: 3 MILLIGRAM
     Route: 048
     Dates: start: 20201020
  8. DOCETAXEL [Suspect]
     Active Substance: DOCETAXEL
     Indication: Breast cancer
     Dosage: 130 MILLIGRAM, Q3WK
     Route: 042
     Dates: start: 20170525, end: 20170525
  9. DOCETAXEL [Suspect]
     Active Substance: DOCETAXEL
     Indication: Breast cancer metastatic
  10. PERTUZUMAB [Suspect]
     Active Substance: PERTUZUMAB
     Indication: Breast cancer
     Dosage: 840 MILLIGRAM, Q3WK
     Route: 042
     Dates: start: 20170524, end: 20170524
  11. PERTUZUMAB [Suspect]
     Active Substance: PERTUZUMAB
     Indication: Breast cancer metastatic
     Dosage: 420 MILLIGRAM, Q3WK
     Route: 042
     Dates: start: 20170614
  12. PERTUZUMAB [Suspect]
     Active Substance: PERTUZUMAB
     Dosage: 300 MILLIGRAM, Q3WK
     Route: 042
     Dates: start: 20170816, end: 20170906
  13. PERTUZUMAB [Suspect]
     Active Substance: PERTUZUMAB
     Dosage: 375 MILLIGRAM, Q3WK
     Route: 042
     Dates: start: 20170705, end: 20170726
  14. ERIBULIN MESYLATE [Suspect]
     Active Substance: ERIBULIN MESYLATE
     Indication: Breast cancer
     Dosage: 1.85 MILLIGRAM
     Route: 042
     Dates: start: 20200611, end: 20200820
  15. ERIBULIN MESYLATE [Suspect]
     Active Substance: ERIBULIN MESYLATE
     Indication: Breast cancer metastatic
  16. NERATINIB [Suspect]
     Active Substance: NERATINIB
     Indication: Breast cancer
     Dosage: 240 MILLIGRAM, QD
     Route: 048
     Dates: start: 20200919, end: 20201104
  17. ADO-TRASTUZUMAB EMTANSINE [Suspect]
     Active Substance: ADO-TRASTUZUMAB EMTANSINE
     Indication: Breast cancer
     Dosage: 240 MILLIGRAM, Q3WK
     Route: 042
     Dates: start: 20190427, end: 20190606
  18. ADO-TRASTUZUMAB EMTANSINE [Suspect]
     Active Substance: ADO-TRASTUZUMAB EMTANSINE
     Indication: Breast cancer metastatic
     Dosage: 200 MILLIGRAM, Q3WK
     Route: 042
     Dates: start: 20190627, end: 20190718
  19. ADO-TRASTUZUMAB EMTANSINE [Suspect]
     Active Substance: ADO-TRASTUZUMAB EMTANSINE
     Dosage: 160 MILLIGRAM, Q3WK
     Route: 042
     Dates: start: 20190829, end: 20200326
  20. PACLITAXEL [Suspect]
     Active Substance: PACLITAXEL
     Indication: Breast cancer
     Dosage: 450 MILLIGRAM, Q3WK
     Route: 042
     Dates: start: 20170614, end: 20170614
  21. PACLITAXEL [Suspect]
     Active Substance: PACLITAXEL
     Indication: Breast cancer metastatic
     Dosage: 375 MILLIGRAM, Q3WK
     Route: 042
     Dates: start: 20170614, end: 20170614
  22. PACLITAXEL [Suspect]
     Active Substance: PACLITAXEL
     Dosage: 375 MILLIGRAM, Q3WK
     Route: 042
     Dates: start: 20170705, end: 20170726
  23. PACLITAXEL [Suspect]
     Active Substance: PACLITAXEL
     Dosage: 300 MILLIGRAM, Q3WK
     Route: 042
     Dates: start: 20170816, end: 20170906
  24. FUSIDIC ACID [Concomitant]
     Active Substance: FUSIDIC ACID
     Indication: Rhinitis
     Dosage: UNK
     Route: 065
     Dates: start: 201905, end: 201905
  25. LOPERAMIDE [Concomitant]
     Active Substance: LOPERAMIDE
     Indication: Product used for unknown indication
     Dosage: 2 MILLIGRAM, AS NECESSARY
     Route: 048
     Dates: start: 20170613, end: 20201113
  26. CETIRIZINE [Concomitant]
     Active Substance: CETIRIZINE HYDROCHLORIDE
     Indication: Urticaria papular
     Dosage: UNK, QD
     Route: 048
     Dates: start: 20190313, end: 2019
  27. LANSOPRAZOLE [Concomitant]
     Active Substance: LANSOPRAZOLE
     Indication: Gastritis
     Dosage: 30 MILLIGRAM, QD
     Route: 048
     Dates: start: 20190730, end: 202010
  28. DOMPERIDONE [Concomitant]
     Active Substance: DOMPERIDONE
     Indication: Product used for unknown indication
     Dosage: 10 MILLIGRAM, TID
     Route: 048
     Dates: start: 20170523, end: 20170526
  29. CIPROFLOXACIN [Concomitant]
     Active Substance: CIPROFLOXACIN
     Indication: Cholecystitis acute
     Dosage: UNK
     Dates: start: 20200707, end: 202007
  30. CIPROFLOXACIN [Concomitant]
     Active Substance: CIPROFLOXACIN
     Indication: Abdominal pain upper
     Dosage: UNK
     Dates: start: 20200909, end: 20200916
  31. TRANEXAMIC ACID [Concomitant]
     Active Substance: TRANEXAMIC ACID
     Indication: Duodenal ulcer
     Dosage: UNK
     Route: 065
     Dates: start: 20190722, end: 201907
  32. TRANEXAMIC ACID [Concomitant]
     Active Substance: TRANEXAMIC ACID
     Indication: Coagulopathy
     Dosage: 1 GRAM, TID (UNCHECKED ONGOING 1 G (GRAM) TABLET PO (ORAL) TID )
     Route: 048
     Dates: start: 20201111, end: 20201112
  33. TRANEXAMIC ACID [Concomitant]
     Active Substance: TRANEXAMIC ACID
     Dosage: 1 GRAM, TID
     Route: 048
     Dates: start: 20201112, end: 20201113
  34. CEFUROXIME [Concomitant]
     Active Substance: CEFUROXIME
     Indication: Product contamination microbial
     Dosage: 250 MILLIGRAM, BID
     Route: 048
     Dates: start: 20200925, end: 20201019
  35. CEFUROXIME [Concomitant]
     Active Substance: CEFUROXIME
     Dosage: 250 MILLIGRAM, BID
     Route: 048
     Dates: start: 20201028
  36. CEFTRIAXONE [Concomitant]
     Active Substance: CEFTRIAXONE
     Indication: Product contamination microbial
     Dosage: 250 MILLIGRAM, BID
     Route: 048
     Dates: start: 20200928, end: 20201012
  37. CEFTRIAXONE [Concomitant]
     Active Substance: CEFTRIAXONE
     Dosage: 2 GRAM, QD
     Route: 042
  38. ACETAMINOPHEN [Concomitant]
     Active Substance: ACETAMINOPHEN
     Indication: Product used for unknown indication
     Dosage: 1 INTERNATIONAL UNIT
     Route: 048
     Dates: start: 20170525, end: 20210205
  39. CALCIUM\CHOLECALCIFEROL [Concomitant]
     Active Substance: CALCIUM\CHOLECALCIFEROL
     Indication: Product used for unknown indication
     Dosage: 1 DOSAGE FORM, TID
     Route: 048
     Dates: start: 20170525, end: 20210205
  40. VANCOMYCIN [Concomitant]
     Active Substance: VANCOMYCIN
     Indication: Clostridium difficile infection
     Dosage: 125 MILLIGRAM, QID
     Route: 048
     Dates: start: 20201030, end: 20201104
  41. VANCOMYCIN [Concomitant]
     Active Substance: VANCOMYCIN
     Dosage: 500 MILLIGRAM, QID
     Route: 048
     Dates: start: 20201104, end: 20201113
  42. VANCOMYCIN [Concomitant]
     Active Substance: VANCOMYCIN
     Dosage: 125 MILLIGRAM, QID (CAPSULE PO (ORAL) QID (FOUR TIMES A DAY))
     Route: 048
     Dates: end: 20201113
  43. VANCOMYCIN [Concomitant]
     Active Substance: VANCOMYCIN
     Dosage: 125 MILLIGRAM, QID
     Route: 048
  44. AZTREONAM [Concomitant]
     Active Substance: AZTREONAM
     Indication: Product contamination microbial
     Dosage: UNK
     Route: 042
     Dates: start: 20201028, end: 20201104
  45. CYCLOSPORINE [Concomitant]
     Active Substance: CYCLOSPORINE
     Indication: Blepharitis
     Dosage: UNK
     Route: 047
     Dates: start: 201708, end: 2018
  46. CLOBETASOL [Concomitant]
     Active Substance: CLOBETASOL
     Indication: Product used for unknown indication
     Dosage: UNK
  47. METRONIDAZOLE [Concomitant]
     Active Substance: METRONIDAZOLE
     Indication: Duodenal ulcer
     Dosage: UNK
     Route: 042
     Dates: start: 20200630, end: 20200709
  48. METRONIDAZOLE [Concomitant]
     Active Substance: METRONIDAZOLE
     Indication: Cholecystitis acute
     Dosage: UNK
     Route: 065
     Dates: start: 20200909, end: 20200914
  49. METRONIDAZOLE [Concomitant]
     Active Substance: METRONIDAZOLE
     Indication: Abdominal pain upper
     Dosage: 2 MILLIGRAM, QD
     Route: 042
     Dates: start: 20200925, end: 20200927
  50. METRONIDAZOLE [Concomitant]
     Active Substance: METRONIDAZOLE
     Dosage: 400 MILLIGRAM, QMO
     Route: 048
     Dates: start: 20201116, end: 202011
  51. CHLORHEXIDINE GLUCONATE [Concomitant]
     Active Substance: CHLORHEXIDINE GLUCONATE
     Indication: Product used for unknown indication
     Dosage: 10 MILLILITER, QID
     Route: 061
     Dates: start: 20170525, end: 2017
  52. TINZAPARIN [Concomitant]
     Active Substance: TINZAPARIN
     Dosage: UNK
  53. TINZAPARIN [Concomitant]
     Active Substance: TINZAPARIN
     Dosage: UNK, QD
     Route: 058
     Dates: start: 20170713, end: 20190723
  54. TINZAPARIN [Concomitant]
     Active Substance: TINZAPARIN
     Dosage: 4500 INTERNATIONAL UNIT, QD
     Route: 058
     Dates: start: 20190916, end: 20191008
  55. ZOLEDRONIC ACID [Concomitant]
     Active Substance: ZOLEDRONIC ACID
     Indication: Product used for unknown indication
     Dosage: 4 MILLIGRAM
     Route: 042
     Dates: start: 20170525, end: 20201022
  56. AMITRIPTYLINE [Concomitant]
     Active Substance: AMITRIPTYLINE
     Indication: Depressed mood
     Dosage: 5 MILLIGRAM, QD
     Route: 048
     Dates: start: 20190827, end: 20190919
  57. AMITRIPTYLINE [Concomitant]
     Active Substance: AMITRIPTYLINE
     Dosage: 1660 MILLIGRAM, QD
     Route: 048
     Dates: start: 20190827, end: 20190919
  58. CHLORPHENIRAMINE MALEATE [Concomitant]
     Active Substance: CHLORPHENIRAMINE MALEATE
     Indication: Product used for unknown indication
     Dosage: 4 MILLIGRAM, QID
     Route: 048
     Dates: start: 20170526, end: 20170530
  59. CIPROFLOXACIN [Concomitant]
     Active Substance: CIPROFLOXACIN
     Indication: Abdominal pain upper
     Dosage: UNK
     Route: 065
     Dates: start: 20200707, end: 20200707
  60. CIPROFLOXACIN [Concomitant]
     Active Substance: CIPROFLOXACIN
     Indication: Cholecystitis acute
     Dosage: UNK
     Route: 065
     Dates: start: 20200909, end: 20200916
  61. CLOBETASOL PROPIONATE [Concomitant]
     Active Substance: CLOBETASOL PROPIONATE
     Indication: Product used for unknown indication
     Dosage: 0.05 PERCENT, BID
     Route: 061
     Dates: start: 20170210, end: 201708
  62. SORBINICATE [Concomitant]
     Active Substance: SORBINICATE
     Dosage: 1 SPRAY, QID
     Route: 060
     Dates: start: 20170526, end: 2017
  63. POTASSIUM BICARBONATE\POTASSIUM CHLORIDE [Concomitant]
     Active Substance: POTASSIUM BICARBONATE\POTASSIUM CHLORIDE
     Dosage: 1 DOSAGE FORM, BID
     Route: 048
     Dates: start: 20170525, end: 20170529
  64. TEICOPLANIN [Concomitant]
     Active Substance: TEICOPLANIN
     Indication: Biliary sepsis
     Dosage: UNK
     Route: 042
     Dates: start: 20200502, end: 20200515
  65. TEICOPLANIN [Concomitant]
     Active Substance: TEICOPLANIN
     Indication: Product contamination microbial
     Dosage: UNK
     Route: 042
     Dates: start: 20200925, end: 20200925
  66. TEICOPLANIN [Concomitant]
     Active Substance: TEICOPLANIN
     Dosage: UNK
     Route: 042
     Dates: start: 20201028, end: 20201104
  67. CARBOXYMETHYLCELLULOSE SODIUM\DEVICE\SORBINICATE [Concomitant]
     Active Substance: CARBOXYMETHYLCELLULOSE SODIUM\DEVICE\SORBINICATE
     Dosage: 1 SPRAY, QID
     Route: 060
     Dates: start: 20170526, end: 2017
  68. CHLORPHENIRAMINE [Concomitant]
     Active Substance: CHLORPHENIRAMINE
     Dosage: 4 MILLIGRAM, QID
     Route: 048
     Dates: start: 20170526, end: 20170530
  69. CHOLECALCIFEROL [Concomitant]
     Active Substance: CHOLECALCIFEROL
     Dosage: 250 MILLIGRAM BID
     Route: 048
     Dates: start: 20200928, end: 20201012
  70. POTASSIUM CHLORIDE [Concomitant]
     Active Substance: POTASSIUM CHLORIDE
     Indication: Product used for unknown indication

REACTIONS (6)
  - Disease progression [Fatal]
  - Breast cancer [Fatal]
  - Pyrexia [Recovered/Resolved]
  - Pyrexia [Not Recovered/Not Resolved]
  - Abdominal pain [Not Recovered/Not Resolved]
  - Off label use [Unknown]

NARRATIVE: CASE EVENT DATE: 20200724
